FAERS Safety Report 8598039-8 (Version None)
Quarter: 2012Q3

REPORT INFORMATION
  Report Type: 
  Country: None (occurrence: None)
  Receive Date: 20120802
  Receipt Date: 20120725
  Transmission Date: 20120928
  Serious: Yes (Death)
  Sender: FDA-Public Use
  Company Number: 2012CT000005

PATIENT
  Age: 48 Year
  Sex: Male

DRUGS (10)
  1. FERROUS SULFATE TAB [Concomitant]
  2. KLOR-CON [Concomitant]
  3. POTASSIUM [Concomitant]
  4. MAGNESIUM [Concomitant]
  5. VITAMIN B COMPLEX CAP [Concomitant]
  6. MIFEPRISTONE (MIFEPREX) [Suspect]
     Indication: CUSHING'S SYNDROME
     Dosage: 300 MG, QD, PO
     Route: 048
     Dates: start: 20120516, end: 20120601
  7. FUROSEMIDE [Concomitant]
  8. LEVOTHYROXINE SODIUM [Concomitant]
  9. FISH OIL [Concomitant]
  10. SUTENT [Concomitant]

REACTIONS (5)
  - PANCREATIC NEUROENDOCRINE TUMOUR METASTATIC [None]
  - PULMONARY EMBOLISM [None]
  - HYPOKALAEMIA [None]
  - PULMONARY INFARCTION [None]
  - BLOOD CALCIUM DECREASED [None]
